FAERS Safety Report 5843531-X (Version None)
Quarter: 2008Q3

REPORT INFORMATION
  Report Type: 
  Country: None (occurrence: None)
  Receive Date: 20080808
  Receipt Date: 20080731
  Transmission Date: 20090109
  Serious: Yes (Other)
  Sender: FDA-Public Use
  Company Number: 2008SP015837

PATIENT
  Age: 40 Year
  Sex: Female

DRUGS (1)
  1. CLARITIN 12 HOUR [Suspect]
     Indication: SINUSITIS
     Dosage: 1 DF; BID
     Dates: start: 20080728, end: 20080731

REACTIONS (2)
  - AGITATION [None]
  - HALLUCINATION [None]
